FAERS Safety Report 8134152-7 (Version None)
Quarter: 2012Q1

REPORT INFORMATION
  Report Type: 
  Country: None (occurrence: None)
  Receive Date: 20120207
  Receipt Date: 20120202
  Transmission Date: 20120608
  Serious: Yes (Death)
  Sender: FDA-Public Use
  Company Number: 2012SP006150

PATIENT
  Age: 64 Year
  Sex: Male
  Weight: 72 kg

DRUGS (7)
  1. PEG-INTRON [Suspect]
     Indication: HEPATITIS C
     Dosage: 1.5 MCG/KG;WW;SC
     Route: 058
     Dates: start: 20120106
  2. RIBAVIRIN [Concomitant]
  3. TELAVIC (TELAPREVIR) (INVESTIGATIONAL DRUG) [Suspect]
     Indication: HEPATITIS C
     Dosage: 2250 MG;QD;PO 2000 MG;QD;PO
     Route: 048
     Dates: start: 20120106, end: 20120119
  4. TELAVIC (TELAPREVIR) (INVESTIGATIONAL DRUG) [Suspect]
     Indication: HEPATITIS C
     Dosage: 2250 MG;QD;PO 2000 MG;QD;PO
     Route: 048
     Dates: start: 20120120
  5. REBETOL [Suspect]
     Indication: HEPATITIS C
     Dosage: 800 MG;QD;PO 400 MG;QD;PO
     Route: 048
     Dates: start: 20120106, end: 20120119
  6. REBETOL [Suspect]
     Indication: HEPATITIS C
     Dosage: 800 MG;QD;PO 400 MG;QD;PO
     Route: 048
     Dates: start: 20120120
  7. INTERFERON [Concomitant]

REACTIONS (1)
  - DEATH [None]
